FAERS Safety Report 18173408 (Version 2)
Quarter: 2020Q3

REPORT INFORMATION
  Report Type: Report from Study
  Country: GB (occurrence: GB)
  Receive Date: 20200820
  Receipt Date: 20200905
  Transmission Date: 20201103
  Serious: Yes (Death, Other)
  Sender: FDA-Public Use
  Company Number: GB-AMGEN-GBRNI2020134336

PATIENT
  Age: 90 Year
  Sex: Female
  Weight: 65 kg

DRUGS (1)
  1. ETANERCEPT [Suspect]
     Active Substance: ETANERCEPT
     Indication: RHEUMATOID ARTHRITIS
     Dosage: 25 MILLIGRAM
     Route: 058
     Dates: start: 20060615, end: 20131023

REACTIONS (1)
  - Death [Fatal]

NARRATIVE: CASE EVENT DATE: 20180210
